APPROVED DRUG PRODUCT: QUARZAN
Active Ingredient: CLIDINIUM BROMIDE
Strength: 5MG
Dosage Form/Route: CAPSULE;ORAL
Application: N010355 | Product #002
Applicant: HOFFMANN LA ROCHE INC
Approved: Approved Prior to Jan 1, 1982 | RLD: No | RS: No | Type: DISCN